FAERS Safety Report 7570210-3 (Version None)
Quarter: 2011Q2

REPORT INFORMATION
  Report Type: 
  Country: None (occurrence: None)
  Receive Date: 20110624
  Receipt Date: 20110609
  Transmission Date: 20111010
  Serious: Yes (Other)
  Sender: FDA-Public Use
  Company Number: BE-WATSON-2011-09053

PATIENT

DRUGS (5)
  1. SIMVASTATIN [Suspect]
     Indication: HYPERCHOLESTEROLAEMIA
     Dosage: 40 -80 MG, DAILY
     Route: 048
  2. AMIODARONE HCL [Suspect]
     Indication: ATRIAL FIBRILLATION
     Dosage: 200 MG, DAILY
     Route: 065
  3. VERAPAMIL HCL [Suspect]
     Indication: HYPERTENSION
  4. ATAZAVIR [Suspect]
     Indication: PRODUCT USED FOR UNKNOWN INDICATION
     Route: 065
  5. CLARITHROMYCIN [Suspect]
     Indication: INFECTION
     Route: 048

REACTIONS (2)
  - RHABDOMYOLYSIS [None]
  - DRUG INTERACTION [None]
